FAERS Safety Report 9715879 (Version 1)
Quarter: 2013Q4

REPORT INFORMATION
  Report Type: Spontaneous
  Country: AU (occurrence: None)
  Receive Date: 20131126
  Receipt Date: 20131126
  Transmission Date: 20140711
  Serious: Yes (Other)
  Sender: FDA-Public Use
  Company Number: None

PATIENT
  Age: 67 Year
  Sex: 0
  Weight: 70 kg

DRUGS (1)
  1. RISPERIDOL .5 MG [Suspect]
     Indication: DEMENTIA
     Dosage: 3 PILLS, MIXED IN CHOCOLATE SAUCE

REACTIONS (1)
  - Transient ischaemic attack [None]
